FAERS Safety Report 25203981 (Version 1)
Quarter: 2025Q2

REPORT INFORMATION
  Report Type: Spontaneous
  Country: US (occurrence: US)
  Receive Date: 20250416
  Receipt Date: 20250416
  Transmission Date: 20250717
  Serious: No
  Sender: AMGEN
  Company Number: US-AMGEN-USASP2025073576

PATIENT
  Sex: Male

DRUGS (3)
  1. TAVNEOS [Suspect]
     Active Substance: AVACOPAN
     Indication: Anti-neutrophil cytoplasmic antibody positive vasculitis
     Route: 065
     Dates: start: 202501, end: 202502
  2. RITUXIMAB [Suspect]
     Active Substance: RITUXIMAB
     Indication: Product used for unknown indication
     Route: 065
  3. CYCLOPHOSPHAMIDE [Concomitant]
     Active Substance: CYCLOPHOSPHAMIDE

REACTIONS (2)
  - Hepatic enzyme increased [Recovered/Resolved]
  - Increased liver stiffness [Unknown]

NARRATIVE: CASE EVENT DATE: 20250101
